FAERS Safety Report 4572552-2 (Version None)
Quarter: 2005Q1

REPORT INFORMATION
  Report Type: 
  Country: None (occurrence: None)
  Receive Date: 20050208
  Receipt Date: 20050127
  Transmission Date: 20050727
  Serious: Yes (Other)
  Sender: FDA-Public Use
  Company Number: US-JNJFOC-20050200094

PATIENT
  Sex: Female

DRUGS (16)
  1. INFLIXIMAB [Suspect]
     Indication: RHEUMATOID ARTHRITIS
     Route: 042
  2. ZIAC [Concomitant]
  3. ZIAC [Concomitant]
  4. ARTHROTEC [Concomitant]
  5. ARTHROTEC [Concomitant]
  6. METHOTREXATE [Concomitant]
  7. NORVASC [Concomitant]
  8. FOLIC ACID [Concomitant]
  9. TAMOXIFEN CITRATE [Concomitant]
  10. ZOCOR [Concomitant]
  11. TRICOR [Concomitant]
  12. AMITRIPTYLINE [Concomitant]
  13. ACTONEL [Concomitant]
  14. FLAX SEED OIL [Concomitant]
     Dosage: 2-3 TABLETS DAILY
  15. CALCIUM +D [Concomitant]
  16. VITAMIN E [Concomitant]

REACTIONS (1)
  - BASAL CELL CARCINOMA [None]
